FAERS Safety Report 19846155 (Version 1)
Quarter: 2021Q3

REPORT INFORMATION
  Report Type: Spontaneous
  Country: US (occurrence: US)
  Receive Date: 20210915
  Receipt Date: 20210915
  Transmission Date: 20211014
  Serious: No
  Sender: FDA-Public Use
  Company Number: None

PATIENT
  Sex: Male

DRUGS (1)
  1. REMICADE [Suspect]
     Active Substance: INFLIXIMAB
     Indication: RHEUMATOID ARTHRITIS
     Dosage: ?          OTHER STRENGTH:100MG/VL;OTHER FREQUENCY:EVERY 6 WEEKS;?
     Route: 058
     Dates: start: 202105

REACTIONS (1)
  - Therapeutic product effect decreased [None]
